FAERS Safety Report 7357405-9 (Version None)
Quarter: 2011Q1

REPORT INFORMATION
  Report Type: 
  Country: None (occurrence: None)
  Receive Date: 20110314
  Receipt Date: 20110314
  Transmission Date: 20110831
  Serious: Yes (Hospitalization)
  Sender: FDA-Public Use
  Company Number: None

PATIENT
  Sex: Female
  Weight: 34 kg

DRUGS (2)
  1. CAMPTOSAR [Suspect]
     Dosage: 58 MG
  2. VINCRISTINE SULFATE [Suspect]
     Dosage: 1.5 MG

REACTIONS (10)
  - SUBARACHNOID HAEMORRHAGE [None]
  - RESPIRATORY DISORDER [None]
  - PYREXIA [None]
  - PANCYTOPENIA [None]
  - RESPIRATORY RATE INCREASED [None]
  - HAEMOGLOBIN DECREASED [None]
  - PLATELET COUNT DECREASED [None]
  - VENTRICULAR TACHYCARDIA [None]
  - CEREBRAL HAEMATOMA [None]
  - CYSTITIS HAEMORRHAGIC [None]
